FAERS Safety Report 11761692 (Version 2)
Quarter: 2016Q2

REPORT INFORMATION
  Report Type: Report from Study
  Country: US (occurrence: US)
  Receive Date: 20151120
  Receipt Date: 20160518
  Transmission Date: 20160815
  Serious: Yes (Death, Other)
  Sender: FDA-Public Use
  Company Number: PHEH2015US023614

PATIENT
  Sex: Male

DRUGS (1)
  1. AFINITOR [Suspect]
     Active Substance: EVEROLIMUS
     Indication: PRODUCT USED FOR UNKNOWN INDICATION
     Dosage: 10 MG/KG, QD
     Route: 048

REACTIONS (5)
  - Scrotal swelling [Unknown]
  - Cardiac failure [Fatal]
  - Renal failure [Fatal]
  - Pulmonary oedema [Unknown]
  - Neoplasm malignant [Fatal]
